FAERS Safety Report 8991204 (Version 1)
Quarter: 2012Q4

REPORT INFORMATION
  Report Type: Spontaneous
  Country: US (occurrence: None)
  Receive Date: 20121219
  Receipt Date: 20121219
  Transmission Date: 20130627
  Serious: Yes (Other)
  Sender: FDA-Public Use
  Company Number: US-1195777

PATIENT
  Age: 72 Year
  Sex: Male

DRUGS (2)
  1. PREDNISOLONE ACETATE 1% [Suspect]
     Indication: CORNEAL DEGENERATION
     Dosage: OD
     Route: 061
  2. GANCICLOVIR 0.15 % OPHTHALMIC GEL [Concomitant]

REACTIONS (3)
  - Keratitis viral [None]
  - Viral uveitis [None]
  - Disease recurrence [None]
